FAERS Safety Report 19002511 (Version 1)
Quarter: 2021Q1

REPORT INFORMATION
  Report Type: Spontaneous
  Country: GB (occurrence: GB)
  Receive Date: 20210312
  Receipt Date: 20210312
  Transmission Date: 20210420
  Serious: Yes (Other)
  Sender: FDA-Public Use
  Company Number: GB-TEVA-2021-GB-1888523

PATIENT

DRUGS (1)
  1. TRIMETHOPRIM. [Suspect]
     Active Substance: TRIMETHOPRIM
     Indication: URINARY TRACT INFECTION
     Dosage: 3 DF
     Route: 063
     Dates: start: 20181115, end: 20181117

REACTIONS (3)
  - Retching [Recovered/Resolved]
  - Vomiting [Recovered/Resolved]
  - Maternal exposure during breast feeding [Recovered/Resolved]

NARRATIVE: CASE EVENT DATE: 20181116
